FAERS Safety Report 19735866 (Version 1)
Quarter: 2021Q3

REPORT INFORMATION
  Report Type: Spontaneous
  Country: ES (occurrence: ES)
  Receive Date: 20210823
  Receipt Date: 20210823
  Transmission Date: 20211014
  Serious: Yes (Hospitalization)
  Sender: FDA-Public Use
  Company Number: ES-MYLANLABS-2021M1052904

PATIENT
  Age: 53 Year
  Sex: Male

DRUGS (3)
  1. AZITHROMYCIN MYLAN [Suspect]
     Active Substance: AZITHROMYCIN ANHYDROUS
     Indication: COVID-19
     Dosage: UNK
     Route: 065
  2. TOCILIZUMAB. [Suspect]
     Active Substance: TOCILIZUMAB
     Indication: COVID-19
     Dosage: 600 MILLIGRAM, 2 DOSES
     Route: 065
  3. CEFTRIAXONE. [Suspect]
     Active Substance: CEFTRIAXONE
     Indication: COVID-19
     Dosage: UNK
     Route: 065

REACTIONS (4)
  - Off label use [Unknown]
  - Infective chondritis [Recovered/Resolved]
  - Device related infection [Recovered/Resolved]
  - Infective spondylitis [Recovered/Resolved with Sequelae]
